FAERS Safety Report 6614322 (Version 2)
Quarter: 2019Q1

REPORT INFORMATION
  Report Type: Spontaneous
  Country: FR (occurrence: FR)
  Receive Date: 20060710
  Receipt Date: 20190129
  Transmission Date: 20190418
  Serious: Yes (Life-Threatening, Hospitalization, Other)
  Sender: FDA-Public Use
  Company Number: FR-BRISTOL-MYERS SQUIBB COMPANY-13432299

PATIENT
  Age: 79 Year
  Sex: Male

DRUGS (3)
  1. COUMADIN [Suspect]
     Active Substance: WARFARIN SODIUM
     Indication: ATRIAL FIBRILLATION
     Dosage: 2 MG, QD
     Route: 048
     Dates: end: 20060612
  2. CIFLOX [Interacting]
     Active Substance: CIPROFLOXACIN
     Indication: GASTROENTERITIS
     Dosage: 200 MG, UNK
     Route: 042
     Dates: start: 20060609, end: 20060610
  3. CIFLOX [Interacting]
     Active Substance: CIPROFLOXACIN
     Indication: PRODUCT USED FOR UNKNOWN INDICATION
     Dosage: 500 MG, UNK
     Route: 048
     Dates: start: 20060611, end: 20060614

REACTIONS (10)
  - Renal failure [Recovered/Resolved]
  - Shock [Recovered/Resolved]
  - Prothrombin level decreased [Recovered/Resolved]
  - Anaemia [Recovered/Resolved]
  - Diverticulum intestinal [Recovered/Resolved]
  - Prothrombin time shortened [Recovered/Resolved]
  - Shock haemorrhagic [Recovered/Resolved]
  - Drug interaction [Recovered/Resolved]
  - Rectal haemorrhage [Recovered/Resolved]
  - Gastroenteritis [Recovered/Resolved]

NARRATIVE: CASE EVENT DATE: 20060609
